FAERS Safety Report 8850239 (Version 1)
Quarter: 2012Q4

REPORT INFORMATION
  Report Type: 
  Country: US (occurrence: US)
  Receive Date: 20121019
  Receipt Date: 20121019
  Transmission Date: 20130627
  Serious: Yes (Other)
  Sender: FDA-Public Use
  Company Number: CHPA2012US021517

PATIENT
  Age: 88 Year
  Sex: Female

DRUGS (2)
  1. MYOFLEX ANALGESIC CREME [Suspect]
     Indication: OSTEOARTHRITIS
     Dosage: A BIT, EVERY FEW DAYS
     Route: 061
     Dates: start: 2008
  2. HYDROCHLOROTHIAZIDE [Concomitant]
     Dosage: Unk, Unk

REACTIONS (4)
  - Cardiac failure congestive [Recovered/Resolved]
  - Bronchitis [Recovered/Resolved]
  - Musculoskeletal stiffness [Unknown]
  - Off label use [Unknown]
